FAERS Safety Report 9683415 (Version 1)
Quarter: 2013Q4

REPORT INFORMATION
  Report Type: Spontaneous
  Country: US (occurrence: US)
  Receive Date: 20131112
  Receipt Date: 20131112
  Transmission Date: 20140711
  Serious: Yes (Hospitalization)
  Sender: FDA-Public Use
  Company Number: US-NOVOPROD-391694

PATIENT
  Sex: Female

DRUGS (2)
  1. NOVOLOG [Suspect]
     Indication: PRODUCT USED FOR UNKNOWN INDICATION
     Route: 058
  2. NOVOLOG MIX 70/30 [Suspect]
     Indication: PRODUCT USED FOR UNKNOWN INDICATION
     Route: 058

REACTIONS (3)
  - Headache [Unknown]
  - Abdominal pain upper [Unknown]
  - Cold sweat [Unknown]
